FAERS Safety Report 6260928-7 (Version None)
Quarter: 2009Q3

REPORT INFORMATION
  Report Type: 
  Country: None (occurrence: None)
  Receive Date: 20090709
  Receipt Date: 20080522
  Transmission Date: 20100115
  Serious: Yes (Other)
  Sender: FDA-Public Use
  Company Number: US-ASTRAZENECA-2007UW18081

PATIENT
  Age: 610 Month
  Sex: Male
  Weight: 90.7 kg

DRUGS (26)
  1. SEROQUEL [Suspect]
     Indication: SLEEP DISORDER
     Dosage: 25 TO 200 MG
     Route: 048
     Dates: start: 20010507
  2. SEROQUEL [Suspect]
     Route: 048
     Dates: start: 20031112, end: 20040918
  3. VISTARIL [Concomitant]
     Indication: HYPERSENSITIVITY
     Route: 048
     Dates: start: 20010516
  4. VICODIN [Concomitant]
     Route: 048
  5. ROBAXIN [Concomitant]
     Route: 048
  6. MEDROL [Concomitant]
     Route: 030
  7. DARVOCET-N 100 [Concomitant]
     Indication: PAIN
     Route: 048
  8. BENICAR [Concomitant]
     Indication: HYPERTENSION
     Route: 048
  9. CRESTOR [Concomitant]
     Indication: DYSLIPIDAEMIA
     Route: 048
  10. CLARINEX [Concomitant]
     Route: 048
  11. ANTIVERT [Concomitant]
     Route: 048
  12. NASONEX [Concomitant]
     Dosage: 2 PUFFS EACH NOSTRIL QD
     Route: 045
  13. GLUCOTROL [Concomitant]
     Indication: DIABETES MELLITUS
     Route: 048
  14. PREVACID [Concomitant]
     Route: 048
  15. GLUCOPHAGE [Concomitant]
     Indication: DIABETES MELLITUS
     Route: 048
  16. ACTOS [Concomitant]
     Indication: DIABETES MELLITUS
     Route: 048
  17. TOPROL-XL [Concomitant]
     Indication: HYPERTENSION
     Dosage: 25 TO 50 MG
     Route: 048
  18. EFFEXOR [Concomitant]
     Dosage: 75 TO 150 MG
     Route: 048
  19. UNIVASC [Concomitant]
     Indication: HYPERTENSION
     Route: 048
  20. ZESTRIL [Concomitant]
     Indication: HYPERTENSION
     Dosage: 5 TO 10 MG
     Route: 048
  21. ZOCOR [Concomitant]
     Dosage: 20 TO 40 MG
     Route: 048
  22. ACIPHEX [Concomitant]
     Indication: GASTROOESOPHAGEAL REFLUX DISEASE
     Dosage: 20 TO 40 MG
     Route: 048
  23. GLUCOVANCE [Concomitant]
     Dosage: 1.25/250 TO 5/500 MG
     Route: 048
  24. CAPOTEN [Concomitant]
     Indication: HYPERTENSION
     Route: 048
  25. NEURONTIN [Concomitant]
     Route: 048
  26. KLONOPIN [Concomitant]
     Indication: ANXIETY
     Route: 048

REACTIONS (2)
  - DIABETES MELLITUS [None]
  - DIABETIC NEPHROPATHY [None]
